FAERS Safety Report 17753371 (Version 5)
Quarter: 2020Q4

REPORT INFORMATION
  Report Type: Spontaneous
  Country: US (occurrence: US)
  Receive Date: 20200506
  Receipt Date: 20201029
  Transmission Date: 20210113
  Serious: No
  Sender: FDA-Public Use
  Company Number: US-PFIZER INC-2020180956

PATIENT
  Age: 65 Year
  Sex: Male
  Weight: 99.79 kg

DRUGS (6)
  1. CELECOXIB. [Suspect]
     Active Substance: CELECOXIB
     Indication: NECK PAIN
  2. CELECOXIB. [Suspect]
     Active Substance: CELECOXIB
     Indication: PAIN
  3. IBUPROFEN. [Concomitant]
     Active Substance: IBUPROFEN
     Indication: PAIN
     Dosage: UNK, AS NEEDED (TAKEN AS NEEDED),
  4. CELECOXIB. [Suspect]
     Active Substance: CELECOXIB
     Indication: SPINAL STENOSIS
     Dosage: 200 MG, 1X/DAY (EVERY MORNING WITH FOOD)
     Route: 048
  5. CELECOXIB. [Suspect]
     Active Substance: CELECOXIB
     Indication: SCOLIOSIS
  6. CELECOXIB. [Suspect]
     Active Substance: CELECOXIB
     Indication: ARTHRALGIA

REACTIONS (2)
  - Chest discomfort [Unknown]
  - Drug ineffective [Unknown]
